FAERS Safety Report 9540665 (Version 1)
Quarter: 2013Q3

REPORT INFORMATION
  Report Type: Spontaneous
  Country: IE (occurrence: IE)
  Receive Date: 20130920
  Receipt Date: 20130920
  Transmission Date: 20140515
  Serious: Yes (Other)
  Sender: FDA-Public Use
  Company Number: IE-B.I. PHARMACEUTICALS,INC./RIDGEFIELD-2013-BI-29114IE

PATIENT
  Age: 72 Year
  Sex: Female
  Weight: 60 kg

DRUGS (7)
  1. PRADAXA [Suspect]
     Indication: CEREBROVASCULAR ACCIDENT PROPHYLAXIS
     Dosage: 220 MG
     Route: 048
     Dates: start: 20130405, end: 20130901
  2. PRADAXA [Suspect]
     Indication: THROMBOSIS PROPHYLAXIS
  3. COVERSYL ARGININE [Concomitant]
     Dosage: (COVERSYL ARGININE 5 MILLIGRAM, 1DOASGE FORM, 1 IN 1 DAY)
     Dates: start: 20120101, end: 20130904
  4. GLUCOPHAGE [Concomitant]
     Dosage: 1000 MG
     Dates: start: 20120918, end: 20130904
  5. ISOPTIN SR 240 [Concomitant]
     Dosage: HALF TABLET DAILY- 120MG
     Route: 048
     Dates: start: 20121218, end: 20130904
  6. ROSUVASTATIN [Concomitant]
     Indication: HYPERCHOLESTEROLAEMIA
     Dosage: 20 MG
     Dates: start: 20121018, end: 20130904
  7. TAMBOCOR [Concomitant]
     Dosage: 100 MG
     Dates: start: 20121018, end: 20130904

REACTIONS (2)
  - Eye infection [Not Recovered/Not Resolved]
  - Dry eye [Not Recovered/Not Resolved]
